FAERS Safety Report 9565796 (Version 1)
Quarter: 2013Q3

REPORT INFORMATION
  Report Type: Spontaneous
  Country: JP (occurrence: JP)
  Receive Date: 20130930
  Receipt Date: 20130930
  Transmission Date: 20140515
  Serious: Yes (Death)
  Sender: FDA-Public Use
  Company Number: JP-GLAXOSMITHKLINE-B0925823A

PATIENT
  Age: 60 Year
  Sex: Male

DRUGS (1)
  1. VOTRIENT 200MG [Suspect]
     Indication: LIPOSARCOMA
     Dosage: 600MG PER DAY
     Route: 048
     Dates: start: 20130919, end: 20130921

REACTIONS (4)
  - Tumour rupture [Unknown]
  - Spinal column injury [Fatal]
  - Anaemia [Unknown]
  - Fall [Unknown]
